FAERS Safety Report 7921778-6 (Version None)
Quarter: 2011Q4

REPORT INFORMATION
  Report Type: 
  Country: None (occurrence: None)
  Receive Date: 20111117
  Receipt Date: 20111111
  Transmission Date: 20120403
  Serious: Yes (Hospitalization)
  Sender: FDA-Public Use
  Company Number: JP-GLAXOSMITHKLINE-B0762468A

PATIENT
  Age: 8 Decade
  Sex: Female

DRUGS (5)
  1. LAMICTAL [Suspect]
     Indication: BIPOLAR I DISORDER
     Dosage: 200MG PER DAY
     Route: 048
     Dates: start: 20110801
  2. SEROQUEL [Concomitant]
     Route: 048
  3. LAMICTAL [Suspect]
     Dosage: 400MG PER DAY
     Route: 048
     Dates: start: 20110101, end: 20110101
  4. LITHIUM CARBONATE [Concomitant]
     Route: 048
     Dates: end: 20110101
  5. UNKNOWN DRUG [Concomitant]
     Route: 065

REACTIONS (4)
  - FALL [None]
  - INAPPROPRIATE SCHEDULE OF DRUG ADMINISTRATION [None]
  - DELIRIUM [None]
  - OVERDOSE [None]
